FAERS Safety Report 7190633-4 (Version None)
Quarter: 2010Q4

REPORT INFORMATION
  Report Type: 
  Country: None (occurrence: None)
  Receive Date: 20101221
  Receipt Date: 20101221
  Transmission Date: 20110411
  Serious: Yes (Other)
  Sender: FDA-Public Use
  Company Number: None

PATIENT
  Sex: Female
  Weight: 63.5036 kg

DRUGS (2)
  1. METHYLPHENIDATE [Suspect]
     Indication: DEPRESSION
     Dosage: 10 MG ONCE QAM PO MID FEB TO 3-2-10
     Route: 048
     Dates: start: 20100201, end: 20100302
  2. METHYLPHENIDATE [Suspect]
     Indication: OFF LABEL USE
     Dosage: 10 MG ONCE QAM PO MID FEB TO 3-2-10
     Route: 048
     Dates: start: 20100201, end: 20100302

REACTIONS (7)
  - ARTHRALGIA [None]
  - DYSPNOEA [None]
  - GAIT DISTURBANCE [None]
  - MEMORY IMPAIRMENT [None]
  - MYALGIA [None]
  - OFF LABEL USE [None]
  - SPEECH DISORDER [None]
